FAERS Safety Report 16557821 (Version 1)
Quarter: 2019Q3

REPORT INFORMATION
  Report Type: Report from Study
  Country: ES (occurrence: ES)
  Receive Date: 20190711
  Receipt Date: 20190711
  Transmission Date: 20191004
  Serious: Yes (Other)
  Sender: FDA-Public Use
  Company Number: ES-ROCHE-2352624

PATIENT

DRUGS (1)
  1. COBIMETINIB. [Suspect]
     Active Substance: COBIMETINIB
     Indication: ERDHEIM-CHESTER DISEASE
     Dosage: FOR 21 DAYS OF A 28 DAY CYCLE
     Route: 065

REACTIONS (7)
  - Acne [Unknown]
  - Arthralgia [Unknown]
  - Rash [Unknown]
  - Diarrhoea [Unknown]
  - Erythema [Unknown]
  - Asthenia [Unknown]
  - Cardiac failure [Unknown]
